FAERS Safety Report 17503188 (Version 1)
Quarter: 2020Q1

REPORT INFORMATION
  Report Type: Spontaneous
  Country: US (occurrence: US)
  Receive Date: 20200305
  Receipt Date: 20200305
  Transmission Date: 20200409
  Serious: No
  Sender: FDA-Public Use
  Company Number: US-ROCHE-2282311

PATIENT
  Sex: Female
  Weight: 81.72 kg

DRUGS (12)
  1. XOLAIR [Suspect]
     Active Substance: OMALIZUMAB
     Dosage: INCREASED DOSAGE; ONGOING: YES
     Route: 065
     Dates: start: 2018
  2. SPIRIVA [Concomitant]
     Active Substance: TIOTROPIUM BROMIDE MONOHYDRATE
     Indication: ASTHMA
     Dosage: ONGOING: YES
     Route: 055
  3. XOLAIR [Suspect]
     Active Substance: OMALIZUMAB
     Indication: ASTHMA
     Dosage: 2 SHOTS EVERY 2 WEEKS; ONGOING: YES
     Route: 065
     Dates: start: 201710
  4. QVAR [Concomitant]
     Active Substance: BECLOMETHASONE DIPROPIONATE
     Indication: ASTHMA
     Dosage: ONGOING: YES
     Route: 055
  5. JANUVIA [Concomitant]
     Active Substance: SITAGLIPTIN PHOSPHATE
     Dosage: ONCE DAILY ;ONGOING: YES
     Route: 048
  6. SYMBICORT [Concomitant]
     Active Substance: BUDESONIDE\FORMOTEROL FUMARATE DIHYDRATE
     Indication: ASTHMA
     Dosage: ONGOING: YES
     Route: 055
  7. SYNTHROID [Concomitant]
     Active Substance: LEVOTHYROXINE SODIUM
     Dosage: ONCE DAILY ;ONGOING: YES
     Route: 065
  8. RANITIDINE. [Concomitant]
     Active Substance: RANITIDINE
     Dosage: ONCE DAILY ;ONGOING: YES
     Route: 065
  9. SINGULAIR [Concomitant]
     Active Substance: MONTELUKAST SODIUM
     Indication: ASTHMA
     Dosage: ONGOING: YES
     Route: 048
  10. GABAPENTIN. [Concomitant]
     Active Substance: GABAPENTIN
     Indication: PRODUCT USED FOR UNKNOWN INDICATION
     Dosage: ONCE A DAY ;ONGOING: YES
     Route: 065
  11. XOPENEX [Concomitant]
     Active Substance: LEVALBUTEROL HYDROCHLORIDE
     Dosage: AS NEEDED ;ONGOING: YES
     Route: 055
  12. LEVALBUTEROL [LEVOSALBUTAMOL] [Concomitant]
     Active Substance: LEVALBUTEROL
     Dosage: AS NEEDED ;ONGOING: YES
     Route: 055

REACTIONS (2)
  - Fatigue [Recovered/Resolved]
  - Alopecia [Recovered/Resolved]
